FAERS Safety Report 11898028 (Version 1)
Quarter: 2016Q1

REPORT INFORMATION
  Report Type: Spontaneous
  Country: US (occurrence: None)
  Receive Date: 20160107
  Receipt Date: 20160107
  Transmission Date: 20160526
  Serious: No
  Sender: FDA-Public Use
  Company Number: None

PATIENT
  Age: 22 Year
  Sex: Female
  Weight: 45.36 kg

DRUGS (4)
  1. VITAMIN D [Concomitant]
     Active Substance: CHOLECALCIFEROL
  2. DEXARCORTIN (DEXAREL) [Suspect]
     Active Substance: DEXAMETHASONE
     Indication: APPETITE DISORDER
     Dosage: 3 PILLS DAILY 3 DAYS DAILY BY MOUTH
     Route: 048
     Dates: start: 2008
  3. ONE A DAY WOMAN [Concomitant]
  4. VITAMIN B12 [Concomitant]
     Active Substance: CYANOCOBALAMIN

REACTIONS (3)
  - Heart rate increased [None]
  - Paraesthesia [None]
  - Pruritus generalised [None]
